FAERS Safety Report 17750957 (Version 1)
Quarter: 2020Q2

REPORT INFORMATION
  Report Type: Spontaneous
  Country: US (occurrence: US)
  Receive Date: 20200505
  Receipt Date: 20200505
  Transmission Date: 20200714
  Serious: Yes (Death)
  Sender: FDA-Public Use
  Company Number: None

PATIENT
  Sex: Female

DRUGS (15)
  1. LEVALBUTEROL NEB [Concomitant]
  2. MEGESTROL AC [Concomitant]
  3. ONDANSETRON [Concomitant]
     Active Substance: ONDANSETRON
  4. ANORO ELLIPT [Concomitant]
  5. FUROSEMIDE. [Concomitant]
     Active Substance: FUROSEMIDE
  6. DILTIAZEM. [Concomitant]
     Active Substance: DILTIAZEM
  7. FLUTICASONE. [Concomitant]
     Active Substance: FLUTICASONE
  8. GABAPENTIN. [Concomitant]
     Active Substance: GABAPENTIN
  9. METOPROLOL TAR [Concomitant]
     Active Substance: METOPROLOL TARTRATE
  10. AMIODARONE [Concomitant]
     Active Substance: AMIODARONE
  11. XARELTO [Concomitant]
     Active Substance: RIVAROXABAN
  12. TOBRAMYCIN 300MG/5ML 20ML [Suspect]
     Active Substance: TOBRAMYCIN
     Indication: BRONCHIECTASIS
     Dosage: ?          OTHER STRENGTH:300MG/5ML 20ML;?
     Route: 055
     Dates: start: 20190706
  13. ATORVASTATIN [Concomitant]
     Active Substance: ATORVASTATIN
  14. CEPHALEXIN. [Concomitant]
     Active Substance: CEPHALEXIN
  15. MEDROXYPR AC [Concomitant]

REACTIONS (1)
  - Death [None]
